FAERS Safety Report 20657001 (Version 1)
Quarter: 2022Q1

REPORT INFORMATION
  Report Type: Spontaneous
  Country: US (occurrence: US)
  Receive Date: 20220331
  Receipt Date: 20220331
  Transmission Date: 20220424
  Serious: No
  Sender: FDA-Public Use
  Company Number: US-Calliditas-2022CAL00024

PATIENT
  Age: 76 Year
  Sex: Female
  Weight: 69.8 kg

DRUGS (1)
  1. TARPEYO [Suspect]
     Active Substance: BUDESONIDE
     Indication: IgA nephropathy
     Dosage: 16 MG ONCE DAILY
     Route: 050
     Dates: start: 20220201, end: 20220324

REACTIONS (1)
  - Swelling face [Unknown]
